FAERS Safety Report 25806677 (Version 1)
Quarter: 2025Q3

REPORT INFORMATION
  Report Type: Spontaneous
  Country: AU (occurrence: AU)
  Receive Date: 20250916
  Receipt Date: 20250916
  Transmission Date: 20251020
  Serious: Yes (Other)
  Sender: ABBVIE
  Company Number: AU-ABBVIE-6454689

PATIENT
  Age: 53 Year
  Sex: Male

DRUGS (1)
  1. RINVOQ [Suspect]
     Active Substance: UPADACITINIB
     Indication: Ankylosing spondylitis
     Route: 048

REACTIONS (6)
  - Folliculitis [Recovered/Resolved]
  - Scab [Unknown]
  - Secretion discharge [Unknown]
  - Wound [Unknown]
  - Dry skin [Unknown]
  - Skin fissures [Unknown]

NARRATIVE: CASE EVENT DATE: 20230109
